FAERS Safety Report 7522157-6 (Version None)
Quarter: 2011Q2

REPORT INFORMATION
  Report Type: 
  Country: None (occurrence: None)
  Receive Date: 20110603
  Receipt Date: 20110520
  Transmission Date: 20111010
  Serious: Yes (Other)
  Sender: FDA-Public Use
  Company Number: DE-BAYER-2011-043712

PATIENT
  Age: 17 Month
  Sex: Male
  Weight: 13 kg

DRUGS (1)
  1. ASPIRIN I.V. [Suspect]
     Indication: KAWASAKI'S DISEASE
     Dosage: DAILY DOSE 4.5 G
     Route: 042
     Dates: start: 20100715, end: 20100716

REACTIONS (5)
  - APATHY [None]
  - COAGULOPATHY [None]
  - ALKALOSIS [None]
  - TACHYPNOEA [None]
  - METABOLIC ACIDOSIS [None]
